FAERS Safety Report 8188544 (Version 3)
Quarter: 2012Q4

REPORT INFORMATION
  Report Type: Report from Study
  Country: FR (occurrence: FR)
  Receive Date: 20111019
  Receipt Date: 20120904
  Transmission Date: 20130627
  Serious: Yes (Hospitalization)
  Sender: FDA-Public Use
  Company Number: FR-CELGENEUS-056-21880-11100363

PATIENT
  Age: 57 Year
  Sex: Male

DRUGS (30)
  1. REVLIMID [Suspect]
     Indication: MYELOMA
     Route: 048
     Dates: start: 20110517
  2. BORTEZOMIB [Suspect]
     Indication: MYELOMA
     Route: 065
     Dates: start: 20110517
  3. BORTEZOMIB [Suspect]
     Route: 065
     Dates: end: 20110718
  4. DEXAMETHASONE [Suspect]
     Indication: MYELOMA
     Route: 065
     Dates: start: 20110517
  5. BACTRIM [Concomitant]
     Indication: ANTIBACTERIAL PROPHYLAXIS
     Route: 065
     Dates: start: 20110517
  6. ZELITREX [Concomitant]
     Indication: ANTIBACTERIAL PROPHYLAXIS
     Route: 065
     Dates: start: 20110517
  7. CLAMOXYL [Concomitant]
     Indication: ANTIBACTERIAL PROPHYLAXIS
     Route: 065
     Dates: start: 20110517
  8. LOVENOX [Concomitant]
     Indication: THROMBOSIS PROPHYLAXIS
     Route: 065
     Dates: start: 20110517
  9. ISOCORT [Concomitant]
     Indication: DRUG USE FOR UNKNOWN INDICATION
     Route: 065
     Dates: start: 20110517, end: 2011
  10. INEXIUM [Concomitant]
     Indication: DRUG USE FOR UNKNOWN INDICATION
     Route: 065
     Dates: start: 20110517
  11. AUGMENTIN [Concomitant]
     Indication: UPPER RESPIRATORY TRACT INFECTION
     Route: 065
     Dates: start: 20110905, end: 20110907
  12. ROVAMYCINE [Concomitant]
     Indication: COUGH
     Route: 065
     Dates: start: 20110910, end: 20110918
  13. TAZOCILLINE [Concomitant]
     Indication: COUGH
     Route: 065
     Dates: start: 20110608, end: 20110915
  14. FORTUM [Concomitant]
     Indication: DIARRHEA
     Route: 065
     Dates: start: 20110916, end: 20110921
  15. VANCOMYCINE [Concomitant]
     Indication: INFECTION
     Route: 065
     Dates: start: 20110914, end: 20110918
  16. PYOSTACINE [Concomitant]
     Indication: FEVER
     Route: 065
     Dates: start: 20110925, end: 201109
  17. RIVOTRIL [Concomitant]
     Indication: NEUROPATHIC PAIN
     Route: 065
     Dates: start: 20110901
  18. RIVOTRIL [Concomitant]
     Route: 065
     Dates: start: 20110901
  19. NEURONTIN [Concomitant]
     Indication: NEUROPATHIC PAIN
     Route: 065
     Dates: start: 20110902
  20. IXPRIM [Concomitant]
     Indication: NEUROPATHIC PAIN
     Route: 065
     Dates: start: 20110901
  21. FORLAX [Concomitant]
     Indication: CONSTIPATION
     Route: 065
     Dates: start: 201105, end: 201108
  22. ACUPAN [Concomitant]
     Indication: GENERAL BODY PAIN
     Route: 065
     Dates: start: 20110902, end: 20110920
  23. PRIMPERAN [Concomitant]
     Indication: NAUSEA
     Route: 065
     Dates: start: 20110901, end: 20110925
  24. ZOPHREN [Concomitant]
     Indication: NAUSEA
     Route: 065
     Dates: start: 20110901, end: 20110920
  25. FLAGYL [Concomitant]
     Indication: PSEUDOMONAS INFECTION
     Route: 065
     Dates: start: 20110922, end: 20110925
  26. LASILIX [Concomitant]
     Indication: PERIPHERAL OEDEMA
     Route: 065
     Dates: start: 20110914, end: 20110918
  27. TOPALGIC [Concomitant]
     Indication: DRUG USE FOR UNKNOWN INDICATION
     Route: 065
     Dates: start: 20110715
  28. ENDOXAN [Concomitant]
     Indication: DRUG USE FOR UNKNOWN INDICATION
     Dosage: g/MExp2
     Route: 065
  29. MELPHALAN [Concomitant]
     Indication: DRUG USE FOR UNKNOWN INDICATION
     Route: 065
  30. LYRICA [Concomitant]
     Indication: DRUG USE FOR UNKNOWN INDICATION
     Route: 065

REACTIONS (1)
  - Neuropathy peripheral [Recovering/Resolving]
